FAERS Safety Report 22828590 (Version 4)
Quarter: 2023Q4

REPORT INFORMATION
  Report Type: Spontaneous
  Country: US (occurrence: US)
  Receive Date: 20230816
  Receipt Date: 20231120
  Transmission Date: 20240110
  Serious: Yes (Disabling)
  Sender: FDA-Public Use
  Company Number: US-SA-SAC20230814000431

PATIENT
  Age: 63 Year
  Sex: Female

DRUGS (1)
  1. KEVZARA [Suspect]
     Active Substance: SARILUMAB
     Indication: Rheumatoid arthritis
     Dosage: 200 MG, QOW
     Route: 058
     Dates: start: 202307, end: 2023

REACTIONS (14)
  - Loss of personal independence in daily activities [Unknown]
  - Quality of life decreased [Unknown]
  - Pain [Unknown]
  - Gait disturbance [Unknown]
  - Mobility decreased [Unknown]
  - Malaise [Unknown]
  - Gingival bleeding [Unknown]
  - Stomatitis [Not Recovered/Not Resolved]
  - Mouth haemorrhage [Unknown]
  - Headache [Unknown]
  - Rhinorrhoea [Unknown]
  - Oropharyngeal pain [Unknown]
  - Gingival swelling [Unknown]
  - Injection site discolouration [Unknown]

NARRATIVE: CASE EVENT DATE: 20230101
